FAERS Safety Report 23139505 (Version 1)
Quarter: 2023Q4

REPORT INFORMATION
  Report Type: Spontaneous
  Country: CN (occurrence: None)
  Receive Date: 20231102
  Receipt Date: 20231102
  Transmission Date: 20240110
  Serious: Yes (Other)
  Sender: FDA-Public Use
  Company Number: 2023A246768

PATIENT
  Age: 64 Year
  Sex: Male
  Weight: 67.6 kg

DRUGS (8)
  1. TICAGRELOR [Suspect]
     Active Substance: TICAGRELOR
     Indication: Platelet aggregation test
     Route: 048
     Dates: start: 20231014, end: 20231017
  2. METOPROLOL SUCCINATE [Suspect]
     Active Substance: METOPROLOL SUCCINATE
     Indication: Heart rate decreased
     Route: 048
     Dates: start: 20231014, end: 20231018
  3. DAPAGLIFLOZIN [Suspect]
     Active Substance: DAPAGLIFLOZIN
     Indication: Blood glucose
     Route: 048
     Dates: start: 20231014, end: 20231018
  4. GINKGO BILOBA LEAF EXTRACT [Suspect]
     Active Substance: GINKGO BILOBA LEAF EXTRACT
     Indication: Collateral circulation
     Route: 041
     Dates: start: 20231014, end: 20231015
  5. ACARBOSE [Suspect]
     Active Substance: ACARBOSE
     Indication: Blood glucose
     Route: 048
     Dates: start: 20231014, end: 20231018
  6. ATORVASTATIN CALCIUM [Suspect]
     Active Substance: ATORVASTATIN CALCIUM
     Indication: Lipids abnormal
     Route: 048
     Dates: start: 20231014, end: 20231018
  7. ASPIRIN [Suspect]
     Active Substance: ASPIRIN
     Indication: Platelet aggregation normal
     Route: 048
     Dates: start: 20231014, end: 20231018
  8. SODIUM CHLORIDE [Concomitant]
     Active Substance: SODIUM CHLORIDE
     Indication: Solvent sensitivity
     Route: 041
     Dates: start: 20231014, end: 20231015

REACTIONS (3)
  - Pruritus [Recovering/Resolving]
  - Urticaria [Recovering/Resolving]
  - Drug hypersensitivity [Unknown]

NARRATIVE: CASE EVENT DATE: 20231014
